FAERS Safety Report 22075787 (Version 1)
Quarter: 2023Q1

REPORT INFORMATION
  Report Type: Report from Study
  Country: IL (occurrence: IL)
  Receive Date: 20230308
  Receipt Date: 20230308
  Transmission Date: 20230418
  Serious: Yes (Other)
  Sender: FDA-Public Use
  Company Number: IL-TEVAIL-2023-IL-2863424

PATIENT

DRUGS (4)
  1. METHOTREXATE [Suspect]
     Active Substance: METHOTREXATE
     Indication: Central nervous system lymphoma
     Dosage: ADMINISTERED ON DAYS 2, 15 AND 29
     Route: 042
  2. RITUXIMAB [Suspect]
     Active Substance: RITUXIMAB
     Indication: Central nervous system lymphoma
     Dosage: ADMINISTERED ON DAYS 1, 15 AND 28
     Route: 042
  3. PROCARBAZINE [Suspect]
     Active Substance: PROCARBAZINE
     Indication: Central nervous system lymphoma
     Dosage: ADMINISTERED ON DAYS 3-9
     Route: 048
  4. LOMUSTINE [Suspect]
     Active Substance: LOMUSTINE
     Indication: Central nervous system lymphoma
     Dosage: ADMINISTERED ON DAY 2
     Route: 048

REACTIONS (1)
  - Intestinal pseudo-obstruction [Unknown]
